FAERS Safety Report 21309668 (Version 1)
Quarter: 2022Q3

REPORT INFORMATION
  Report Type: Spontaneous
  Country: GB (occurrence: GB)
  Receive Date: 20220908
  Receipt Date: 20220908
  Transmission Date: 20221026
  Serious: Yes (Death, Hospitalization, Other)
  Sender: FDA-Public Use
  Company Number: GB-MHRA-MED-202209011429060440-KCDZQ

PATIENT
  Age: 78 Year
  Sex: Male
  Weight: 63 kg

DRUGS (1)
  1. LEFLUNOMIDE [Suspect]
     Active Substance: LEFLUNOMIDE
     Indication: Giant cell arteritis
     Dosage: 20 MG
     Route: 065
     Dates: start: 20220318, end: 20220704

REACTIONS (4)
  - Pneumonia [Fatal]
  - Hepatitis [Recovered/Resolved]
  - Colitis [Not Recovered/Not Resolved]
  - Skin reaction [Unknown]

NARRATIVE: CASE EVENT DATE: 20220101
